FAERS Safety Report 8804433 (Version 3)
Quarter: 2012Q4

REPORT INFORMATION
  Report Type: Report from Study
  Country: AU (occurrence: AU)
  Receive Date: 20120924
  Receipt Date: 20121018
  Transmission Date: 20130627
  Serious: Yes (Hospitalization)
  Sender: FDA-Public Use
  Company Number: AU-SANOFI-AVENTIS-2012SA068115

PATIENT
  Age: 71 Year
  Sex: Male
  Weight: 64 kg

DRUGS (11)
  1. CABAZITAXEL [Suspect]
     Indication: PROSTATE CANCER METASTATIC
     Route: 042
     Dates: start: 20120316, end: 20120316
  2. CABAZITAXEL [Suspect]
     Indication: PROSTATE CANCER METASTATIC
     Route: 042
     Dates: start: 20120831, end: 20120831
  3. PREDNISONE [Suspect]
     Indication: PROSTATE CANCER METASTATIC
     Route: 048
     Dates: start: 20120316, end: 20120913
  4. NAPROSYN [Concomitant]
     Route: 048
     Dates: start: 2009
  5. RAMIPRIL [Concomitant]
     Route: 065
     Dates: start: 2009
  6. ATORVASTATIN [Concomitant]
     Route: 048
     Dates: start: 2009
  7. ASPIRIN [Concomitant]
     Route: 048
     Dates: start: 2011
  8. CALTRATE [Concomitant]
     Route: 048
     Dates: start: 2009
  9. LUCRIN [Concomitant]
     Route: 058
     Dates: start: 20120302
  10. DENOSUMAB [Concomitant]
     Route: 042
     Dates: start: 20120316
  11. CEFALEXIN [Concomitant]
     Route: 048
     Dates: start: 20120829

REACTIONS (1)
  - Small intestinal obstruction [Recovered/Resolved]
